FAERS Safety Report 4597592-9 (Version None)
Quarter: 2005Q1

REPORT INFORMATION
  Report Type: 
  Country: None (occurrence: None)
  Receive Date: 20050228
  Receipt Date: 20050228
  Transmission Date: 20050727
  Serious: No
  Sender: FDA-Public Use
  Company Number: None

PATIENT
  Age: 62 Year
  Sex: Male
  Weight: 80.7403 kg

DRUGS (9)
  1. DEPODUR [Suspect]
     Indication: PAIN
     Dates: start: 20050216, end: 20050216
  2. SYNTHROID [Concomitant]
  3. PEPCID [Concomitant]
  4. BENICAR [Concomitant]
  5. CARAFATE [Concomitant]
  6. KEFZOL [Concomitant]
  7. TYLENOL (CAPLET) [Concomitant]
  8. SURFAK [Concomitant]
  9. REGLAN [Concomitant]

REACTIONS (1)
  - BODY TEMPERATURE INCREASED [None]
